FAERS Safety Report 10011809 (Version 1)
Quarter: 2014Q1

REPORT INFORMATION
  Report Type: Spontaneous
  Country: GB (occurrence: GB)
  Receive Date: 20140314
  Receipt Date: 20140314
  Transmission Date: 20141002
  Serious: Yes (Other)
  Sender: FDA-Public Use
  Company Number: PHFR2014GB002098

PATIENT
  Sex: Male

DRUGS (2)
  1. CLOZAPINE [Suspect]
     Dosage: UNK
     Route: 048
  2. OLANZAPINE [Concomitant]
     Dosage: UNK

REACTIONS (5)
  - Oesophageal carcinoma [Not Recovered/Not Resolved]
  - Ileus paralytic [Unknown]
  - Large intestinal obstruction [Unknown]
  - Dysphagia [Unknown]
  - Mental impairment [Not Recovered/Not Resolved]
